FAERS Safety Report 13483510 (Version 2)
Quarter: 2017Q2

REPORT INFORMATION
  Report Type: Spontaneous
  Country: FR (occurrence: FR)
  Receive Date: 20170424
  Receipt Date: 20170505
  Transmission Date: 20170830
  Serious: Yes (Death)
  Sender: FDA-Public Use
  Company Number: PHHY2017FR060124

PATIENT
  Age: 60 Year
  Sex: Female
  Weight: 65 kg

DRUGS (4)
  1. ZECLAR [Suspect]
     Active Substance: CLARITHROMYCIN
     Indication: SINUSITIS
     Dosage: UNK
     Route: 048
     Dates: start: 20170116, end: 20170124
  2. AROMASINE [Concomitant]
     Active Substance: EXEMESTANE
     Indication: PRODUCT USED FOR UNKNOWN INDICATION
     Route: 065
  3. LEVOTHYROX [Concomitant]
     Active Substance: LEVOTHYROXINE
     Indication: PRODUCT USED FOR UNKNOWN INDICATION
     Route: 065
  4. AFINITOR [Suspect]
     Active Substance: EVEROLIMUS
     Indication: BREAST CANCER METASTATIC
     Dosage: 7.5 MG, QD
     Route: 048
     Dates: start: 201608, end: 20170206

REACTIONS (8)
  - Cholestasis [Fatal]
  - Oedema peripheral [Fatal]
  - Haemoglobin increased [Fatal]
  - Hypoalbuminaemia [Fatal]
  - Drug interaction [Unknown]
  - Atrioventricular block [Fatal]
  - Dyspnoea [Fatal]
  - Cell death [Fatal]

NARRATIVE: CASE EVENT DATE: 201702
